FAERS Safety Report 5673147-X (Version None)
Quarter: 2008Q2

REPORT INFORMATION
  Report Type: 
  Country: None (occurrence: None)
  Receive Date: 20080219
  Receipt Date: 20080102
  Transmission Date: 20081010
  Serious: No
  Sender: FDA-Public Use
  Company Number: TPA2007A02523

PATIENT
  Age: 74 Year
  Sex: Female
  Weight: 61.6892 kg

DRUGS (1)
  1. ROZEREM [Suspect]
     Indication: INSOMNIA
     Dosage: 8 MG, ONE AT HS, PER ORAL
     Route: 048
     Dates: start: 20071108, end: 20071126

REACTIONS (3)
  - ABNORMAL DREAMS [None]
  - HALLUCINATION, VISUAL [None]
  - SPEECH DISORDER [None]
